FAERS Safety Report 8173506-X (Version None)
Quarter: 2012Q1

REPORT INFORMATION
  Report Type: 
  Country: None (occurrence: None)
  Receive Date: 20120227
  Receipt Date: 20120216
  Transmission Date: 20120608
  Serious: Yes (Hospitalization)
  Sender: FDA-Public Use
  Company Number: WAES 1202USA02799

PATIENT
  Age: 57 Year
  Sex: Male
  Weight: 115.6672 kg

DRUGS (6)
  1. AMLODIPINE BESYLATE [Concomitant]
  2. DECADRON [Suspect]
     Dosage: 4 MG/DAILY/PO
     Route: 048
  3. AZACITIDINE [Suspect]
     Indication: MYELODYSPLASTIC SYNDROME
     Dosage: 75 MG/M[2]/DAILY/SC ; SC
     Route: 058
     Dates: start: 20110616, end: 20110622
  4. CAP VORINOSTAT UNK [Suspect]
     Indication: MYELODYSPLASTIC SYNDROME
     Dosage: 300 MG/BID/PO ; PO ; PO
     Route: 048
     Dates: start: 20110618, end: 20110624
  5. CAP VORINOSTAT UNK [Suspect]
     Indication: MYELODYSPLASTIC SYNDROME
     Dosage: 300 MG/BID/PO ; PO ; PO
     Route: 048
     Dates: end: 20111006
  6. CAP VORINOSTAT UNK [Suspect]
     Indication: MYELODYSPLASTIC SYNDROME
     Dosage: 300 MG/BID/PO ; PO ; PO
     Route: 048
     Dates: start: 20110820, end: 20110827

REACTIONS (7)
  - ESCHERICHIA INFECTION [None]
  - ECTHYMA [None]
  - URINARY TRACT INFECTION [None]
  - CARDIAC VALVE VEGETATION [None]
  - PSEUDOMONAL BACTERAEMIA [None]
  - SKIN LESION [None]
  - WOUND INFECTION [None]
